FAERS Safety Report 9447975 (Version 1)
Quarter: 2013Q3

REPORT INFORMATION
  Report Type: Spontaneous
  Country: HR (occurrence: HR)
  Receive Date: 20130808
  Receipt Date: 20130808
  Transmission Date: 20140515
  Serious: Yes (Disabling)
  Sender: FDA-Public Use
  Company Number: PHHY2013HR084323

PATIENT
  Age: 65 Year
  Sex: Female

DRUGS (4)
  1. EXFORGE [Suspect]
     Indication: ESSENTIAL HYPERTENSION
     Dosage: 1 DF, QD (80 MG VALS/5 MG AMLO)
     Route: 048
     Dates: start: 20130705, end: 20130726
  2. NIBEL [Concomitant]
     Indication: ESSENTIAL HYPERTENSION
     Dosage: 5 MG, QD
     Route: 048
  3. MELARTH [Concomitant]
     Indication: ASTHMA
     Dosage: 10 MG, QD
     Route: 048
  4. HELEX [Concomitant]
     Indication: ANTISOCIAL BEHAVIOUR
     Dosage: 0.25 MG, QD
     Route: 048

REACTIONS (7)
  - Suffocation feeling [Recovered/Resolved]
  - Asthenia [Recovered/Resolved]
  - Erythema [Recovered/Resolved]
  - Pruritus [Recovered/Resolved]
  - Headache [Recovered/Resolved]
  - Blood pressure decreased [Recovered/Resolved]
  - Rash macular [Recovered/Resolved]
